FAERS Safety Report 13807393 (Version 2)
Quarter: 2017Q3

REPORT INFORMATION
  Report Type: Spontaneous
  Country: GB (occurrence: GB)
  Receive Date: 20170728
  Receipt Date: 20170915
  Transmission Date: 20171127
  Serious: Yes (Hospitalization)
  Sender: FDA-Public Use
  Company Number: GB-TEVA-789515ACC

PATIENT
  Age: 72 Year
  Sex: Female

DRUGS (8)
  1. ORAMORPH [Concomitant]
     Active Substance: MORPHINE SULFATE
  2. LANSOPRAZOLE. [Concomitant]
     Active Substance: LANSOPRAZOLE
  3. AZITHROMYCIN ANHYDROUS. [Concomitant]
     Active Substance: AZITHROMYCIN ANHYDROUS
  4. CLOPIDOGREL [Concomitant]
     Active Substance: CLOPIDOGREL BISULFATE
  5. DOCUSATE [Concomitant]
     Active Substance: DOCUSATE
  6. SUBGAM [Concomitant]
     Active Substance: HUMAN IMMUNOGLOBULIN G
  7. DOXYCYCLINE. [Suspect]
     Active Substance: DOXYCYCLINE
     Indication: INFECTIVE EXACERBATION OF BRONCHIECTASIS
     Dosage: 200 MILLIGRAM DAILY;
     Route: 048
     Dates: start: 20170629, end: 20170703
  8. RANITIDINE. [Concomitant]
     Active Substance: RANITIDINE

REACTIONS (6)
  - Oral pain [Not Recovered/Not Resolved]
  - Lip pain [Unknown]
  - Lip ulceration [Not Recovered/Not Resolved]
  - Osteitis [Unknown]
  - Erythema [Unknown]
  - Scab [Unknown]

NARRATIVE: CASE EVENT DATE: 20170701
